FAERS Safety Report 9149769 (Version 3)
Quarter: 2013Q1

REPORT INFORMATION
  Report Type: Spontaneous
  Country: FR (occurrence: None)
  Receive Date: 20130131
  Receipt Date: 20130222
  Transmission Date: 20140127
  Serious: Yes (Hospitalization)
  Sender: FDA-Public Use
  Company Number: 2013-0119

PATIENT
  Age: 65 Year
  Sex: Female
  Weight: 78 kg

DRUGS (17)
  1. CARFILZOMIB [Suspect]
     Indication: PLASMA CELL MYELOMA
     Dosage: 9.7143 MG (34 MG, DAYS 1, 2), INTRAVENOUS
     Route: 042
     Dates: start: 20120307, end: 20120308
  2. LENALIDOMIDE [Suspect]
     Indication: PLASMA CELL MYELOMA
     Dosage: 18.75 MG (25 MG, DAYS 1-21, EVERY 28 DAYS), ORAL
     Route: 048
     Dates: start: 20120307, end: 20120609
  3. DEXAMETHASONE [Suspect]
     Indication: PLASMA CELL MYELOMA
     Dosage: 5.7143 MG (40 MG, DAYS 1,8,15,22, EVERY 28 DAYS)
     Dates: start: 20120307, end: 20121119
  4. FUROSEMIDE [Concomitant]
     Route: 048
  5. HEXAQUINE (THIAMINE HYDROCHLORIDE) (TABLET) (THIAMINE HYDROCHLORIDE) [Concomitant]
  6. INNOHEP (TINZAPARIN SODIUM) (TINZAPARIN SODIUM) [Concomitant]
  7. LASILIX (FUROSEMIDE) (FUROSEMIDE) [Concomitant]
  8. LOPERAMIDE (LOPERAMIDE) (LOPERAMIDE) [Concomitant]
  9. MAGNESIUM B6 (PYRIDOXINE HYDROCHLORIDE) (PYRIDOXINE HYDROCHLORIDE) [Concomitant]
  10. PANTOPRAZOL (PANTOPRAZOLE SODIUM SESQUIHYDRATE) (PANTOPRAZOLE SODIUM SESQUIHYDRATE [Concomitant]
  11. PENTACARINAT (PENTAMIDINE ISETHIONATE) (PENTANIDINE ISETHIONATE) [Concomitant]
  12. UVEDOSE (COLECALCIFEROL) (COLECALCIFEROL) [Concomitant]
  13. ZELITREX (VALACICLOVIR HYDROCHLORIDE) (VALACICLOVIR HYDROCHLORIDE) [Concomitant]
  14. ZOMETA (ZOLEDRONIC ACID) (ZOLEDRONIC ACID) [Concomitant]
  15. ALTIM (CORTIVAZOL) (CORTIVAZOL) [Concomitant]
  16. APROVEL (IRBESARTAN) (IRBESARTAN) [Concomitant]
  17. CLAMOXYL (AMOXICILLIN) (AMOXICILLIN) [Concomitant]

REACTIONS (1)
  - Malaise [None]
